FAERS Safety Report 18232188 (Version 1)
Quarter: 2020Q3

REPORT INFORMATION
  Report Type: Spontaneous
  Country: GB (occurrence: GB)
  Receive Date: 20200904
  Receipt Date: 20200904
  Transmission Date: 20201103
  Serious: Yes (Other)
  Sender: FDA-Public Use
  Company Number: GB-BEH-2020122033

PATIENT
  Sex: Female

DRUGS (2)
  1. ANTI?D IMMUNOGLOBULIN (INN) [Suspect]
     Active Substance: HUMAN RHO(D) IMMUNE GLOBULIN
     Indication: PROPHYLAXIS AGAINST RH ISOIMMUNISATION
     Dosage: AT 29 WEEKS
     Route: 065
  2. ANTI?D IMMUNOGLOBULIN (INN) [Suspect]
     Active Substance: HUMAN RHO(D) IMMUNE GLOBULIN
     Dosage: POST?PARTUM
     Route: 065

REACTIONS (3)
  - Rhesus incompatibility [Unknown]
  - Product dose omission in error [Unknown]
  - Exposure during pregnancy [Unknown]
